FAERS Safety Report 6187604-3 (Version None)
Quarter: 2009Q2

REPORT INFORMATION
  Report Type: 
  Country: None (occurrence: None)
  Receive Date: 20090511
  Receipt Date: 20090506
  Transmission Date: 20091009
  Serious: Yes (Hospitalization)
  Sender: FDA-Public Use
  Company Number: TPA2009A00923

PATIENT
  Sex: Female

DRUGS (6)
  1. ROZEREM [Suspect]
     Indication: DRUG USE FOR UNKNOWN INDICATION
     Dosage: 8 MG, PER ORAL
     Route: 048
  2. CYMBALTA [Concomitant]
  3. HYDROXYZINE [Concomitant]
  4. TIZANIDINE HCL [Concomitant]
  5. NEXIUM [Concomitant]
  6. SUMATRIPTAN SUCCINATE [Concomitant]

REACTIONS (2)
  - DIVERTICULAR PERFORATION [None]
  - DIVERTICULUM INTESTINAL [None]
